FAERS Safety Report 6033347-6 (Version None)
Quarter: 2009Q1

REPORT INFORMATION
  Report Type: 
  Country: None (occurrence: None)
  Receive Date: 20090109
  Receipt Date: 20081229
  Transmission Date: 20090719
  Serious: Yes (Death, Life-Threatening)
  Sender: FDA-Public Use
  Company Number: GR-PFIZER INC-2008083466

PATIENT

DRUGS (1)
  1. XANAX [Suspect]
     Indication: INSOMNIA
     Dosage: AS NEEDED
     Route: 048

REACTIONS (1)
  - COMPLETED SUICIDE [None]
